FAERS Safety Report 9151277 (Version 1)
Quarter: 2013Q1

REPORT INFORMATION
  Report Type: Spontaneous
  Country: CO (occurrence: CO)
  Receive Date: 20130308
  Receipt Date: 20130308
  Transmission Date: 20140127
  Serious: Yes (Other)
  Sender: FDA-Public Use
  Company Number: CO-AMGEN-COLSP2013015908

PATIENT
  Age: 57 Year
  Sex: Female

DRUGS (4)
  1. ENBREL [Suspect]
     Indication: RHEUMATOID ARTHRITIS
     Dosage: 50 MG, WEEKLY
     Route: 058
     Dates: start: 201105
  2. CALCIUM WITH VITAMIN D             /00944201/ [Concomitant]
     Indication: BONE DISORDER
     Dosage: UNK, 1X/DAY
     Route: 048
     Dates: start: 2003
  3. THYROXINE [Concomitant]
     Indication: THYROID DISORDER
     Dosage: 75 MG, 1X/DAY
     Route: 048
     Dates: start: 2010
  4. LOVASTATIN [Concomitant]
     Indication: BLOOD CHOLESTEROL INCREASED
     Dosage: 20 MG, 2X/DAY
     Route: 048
     Dates: start: 2010

REACTIONS (6)
  - Arrhythmia [Not Recovered/Not Resolved]
  - Discomfort [Not Recovered/Not Resolved]
  - Headache [Not Recovered/Not Resolved]
  - Cough [Not Recovered/Not Resolved]
  - Pyrexia [Not Recovered/Not Resolved]
  - Pharyngitis [Not Recovered/Not Resolved]
